FAERS Safety Report 7522624 (Version 2)
Quarter: 2012Q4

REPORT INFORMATION
  Report Type: 
  Country: CA (occurrence: CA)
  Receive Date: 20100803
  Receipt Date: 20121129
  Transmission Date: 20130627
  Serious: Yes (Hospitalization, Other)
  Sender: FDA-Public Use
  Company Number: PHHY2009CA00854

PATIENT
  Sex: Female
  Weight: 38 kg

DRUGS (1)
  1. SANDOSTATIN LAR [Suspect]
     Indication: CARCINOID SYNDROME
     Dosage: 10 mg, QMO
     Route: 030
     Dates: start: 20080407, end: 20081223

REACTIONS (12)
  - Contralateral breast cancer [Recovering/Resolving]
  - Tenderness [Recovering/Resolving]
  - Muscle atrophy [Not Recovered/Not Resolved]
  - Gait disturbance [Recovered/Resolved]
  - Asthenia [Recovered/Resolved]
  - Injection site pain [Recovered/Resolved]
  - Weight decreased [Recovered/Resolved]
  - Blood pressure increased [Unknown]
  - Feeling abnormal [Unknown]
  - Stress [Unknown]
  - Mucous stools [Recovered/Resolved]
  - Dizziness [Recovering/Resolving]
